FAERS Safety Report 9149078 (Version 1)
Quarter: 2013Q1

REPORT INFORMATION
  Report Type: Spontaneous
  Country: AU (occurrence: None)
  Receive Date: 20130301
  Receipt Date: 20130301
  Transmission Date: 20140127
  Serious: Yes (Death, Hospitalization)
  Sender: FDA-Public Use
  Company Number: SYM-2013-00949

PATIENT
  Age: 74 Year
  Sex: Male

DRUGS (3)
  1. FLUOROURACIL [Suspect]
     Indication: COLON CANCER METASTATIC
     Dates: start: 200810, end: 200812
  2. OXALIPLATIN [Suspect]
     Indication: COLON CANCER METASTATIC
     Dates: start: 200810, end: 200812
  3. LEUCOVORIN [Suspect]
     Indication: COLON CANCER METASTATIC
     Dates: start: 200810, end: 200812

REACTIONS (5)
  - Interstitial lung disease [None]
  - Respiratory failure [None]
  - Haemoptysis [None]
  - Pulmonary oedema [None]
  - Pulmonary alveolar haemorrhage [None]
